FAERS Safety Report 10056225 (Version 3)
Quarter: 2014Q2

REPORT INFORMATION
  Report Type: Spontaneous
  Country: VN (occurrence: VN)
  Receive Date: 20140403
  Receipt Date: 20140505
  Transmission Date: 20141212
  Serious: Yes (Death, Other)
  Sender: FDA-Public Use
  Company Number: VN-GE HEALTHCARE MEDICAL DIAGNOSTICS-OMPQ-PR-1403S-0349

PATIENT
  Age: 73 Year
  Sex: Male

DRUGS (2)
  1. OMNIPAQUE [Suspect]
     Indication: PRODUCT USED FOR UNKNOWN INDICATION
     Route: 042
     Dates: start: 20140331, end: 20140331
  2. OMNIPAQUE [Suspect]
     Indication: DIAGNOSTIC PROCEDURE

REACTIONS (7)
  - Panic reaction [Fatal]
  - Urinary retention [Fatal]
  - Sleep talking [Fatal]
  - Feeling cold [Fatal]
  - Respiratory rate increased [Fatal]
  - Heart rate decreased [Fatal]
  - Blood pressure decreased [Fatal]
